FAERS Safety Report 8962776 (Version 3)
Quarter: 2013Q1

REPORT INFORMATION
  Report Type: Report from Study
  Country: AU (occurrence: AU)
  Receive Date: 20121213
  Receipt Date: 20130228
  Transmission Date: 20140127
  Serious: Yes (Hospitalization, Other)
  Sender: FDA-Public Use
  Company Number: AU-JNJFOC-20121205139

PATIENT
  Age: 58 Year
  Sex: Female

DRUGS (11)
  1. STELARA [Suspect]
     Indication: PSORIASIS
     Route: 058
     Dates: start: 20110701
  2. STELARA [Suspect]
     Indication: PSORIASIS
     Route: 058
     Dates: start: 20120624
  3. STELARA [Suspect]
     Indication: PSORIASIS
     Route: 058
     Dates: start: 20120330
  4. STELARA [Suspect]
     Indication: PSORIASIS
     Route: 058
     Dates: start: 20120106
  5. STELARA [Suspect]
     Indication: PSORIASIS
     Route: 058
     Dates: start: 20110923
  6. STELARA [Suspect]
     Indication: PSORIASIS
     Route: 058
     Dates: start: 20121215
  7. STELARA [Suspect]
     Indication: PSORIASIS
     Route: 058
     Dates: start: 20110408
  8. STELARA [Suspect]
     Indication: PSORIASIS
     Route: 058
     Dates: start: 20101226
  9. STELARA [Suspect]
     Indication: PSORIASIS
     Route: 058
     Dates: start: 20101002
  10. STELARA [Suspect]
     Indication: PSORIASIS
     Route: 058
     Dates: start: 20100909
  11. STELARA [Suspect]
     Indication: PSORIASIS
     Route: 058
     Dates: start: 20120916

REACTIONS (3)
  - Vaginal laceration [Recovered/Resolved]
  - Hysterectomy [Recovered/Resolved]
  - Psoriasis [Unknown]
